FAERS Safety Report 8545041-8 (Version None)
Quarter: 2012Q3

REPORT INFORMATION
  Report Type: 
  Country: None (occurrence: None)
  Receive Date: 20120727
  Receipt Date: 20120112
  Transmission Date: 20120928
  Serious: Yes (Hospitalization, Other)
  Sender: FDA-Public Use
  Company Number: US-ROCHE-1092365

PATIENT
  Sex: Male

DRUGS (5)
  1. ADVAIR [Concomitant]
  2. EPIPEN [Concomitant]
  3. SINGULAIR [Concomitant]
  4. XOLAIR [Suspect]
     Indication: ASTHMA
     Dates: start: 20060817, end: 20070308
  5. FLOVENT [Concomitant]

REACTIONS (3)
  - ASTHMA [None]
  - PNEUMONIA [None]
  - NASOPHARYNGITIS [None]
